FAERS Safety Report 9238105 (Version 1)
Quarter: 2013Q1

REPORT INFORMATION
  Report Type: Spontaneous
  Country: US (occurrence: None)
  Receive Date: 20121107
  Receipt Date: 20121107
  Transmission Date: 20140127
  Serious: No
  Sender: FDA-Public Use
  Company Number: 2012HGS-003791

PATIENT
  Age: 56 Year
  Sex: Female

DRUGS (1)
  1. BENLYSTA [Suspect]
     Indication: SYSTEMIC LUPUS ERYTHEMATOSUS
     Route: 041
     Dates: start: 201204

REACTIONS (7)
  - Asthenia [None]
  - Influenza [None]
  - Fatigue [None]
  - Mobility decreased [None]
  - Weight decreased [None]
  - Diarrhoea [None]
  - Nausea [None]
